FAERS Safety Report 21346499 (Version 1)
Quarter: 2022Q3

REPORT INFORMATION
  Report Type: Spontaneous
  Country: FR (occurrence: FR)
  Receive Date: 20220917
  Receipt Date: 20220917
  Transmission Date: 20221027
  Serious: Yes (Other)
  Sender: FDA-Public Use
  Company Number: None

PATIENT
  Age: 37 Year
  Sex: Female

DRUGS (1)
  1. SCOPOLAMINE [Suspect]
     Active Substance: SCOPOLAMINE
     Indication: Salivary hypersecretion
     Dosage: 1 DOSAGE FORM, 1 PATCH / 72H (TRANSDERMAL PATCH)
     Route: 062
     Dates: start: 20220827, end: 20220827

REACTIONS (4)
  - Malaise [Recovered/Resolved]
  - Paraesthesia [Recovered/Resolved]
  - Anisocoria [Recovered/Resolved]
  - Mydriasis [Recovered/Resolved]

NARRATIVE: CASE EVENT DATE: 20220827
